FAERS Safety Report 5614157-8 (Version None)
Quarter: 2008Q1

REPORT INFORMATION
  Report Type: 
  Country: None (occurrence: None)
  Receive Date: 20080205
  Receipt Date: 20080131
  Transmission Date: 20080703
  Serious: Yes (Other)
  Sender: FDA-Public Use
  Company Number: A0706649A

PATIENT
  Age: 34 Year
  Sex: Female

DRUGS (7)
  1. ADVAIR DISKUS 100/50 [Suspect]
     Indication: ASTHMA
     Route: 055
     Dates: start: 20050101
  2. FLONASE [Concomitant]
  3. ALBUTEROL [Concomitant]
  4. ALLEGRA [Concomitant]
  5. PRILOSEC [Concomitant]
  6. ZANTAC [Concomitant]
  7. UNKNOWN [Concomitant]

REACTIONS (6)
  - ANXIETY [None]
  - ASTHMA [None]
  - COUGH [None]
  - DYSGEUSIA [None]
  - DYSPNOEA [None]
  - PHARMACEUTICAL PRODUCT COMPLAINT [None]
